FAERS Safety Report 9356151 (Version 4)
Quarter: 2014Q1

REPORT INFORMATION
  Report Type: Spontaneous
  Country: US (occurrence: US)
  Receive Date: 20130619
  Receipt Date: 20140310
  Transmission Date: 20141002
  Serious: Yes (Death)
  Sender: FDA-Public Use
  Company Number: US-GLAXOSMITHKLINE-A1021916A

PATIENT
  Age: 68 Year
  Sex: Female

DRUGS (2)
  1. FLOLAN [Suspect]
     Indication: COR PULMONALE CHRONIC
     Dosage: 51NGKM CONTINUOUS
     Route: 042
     Dates: start: 20061010
  2. REVATIO [Concomitant]

REACTIONS (10)
  - Catheter site infection [Not Recovered/Not Resolved]
  - Death [Fatal]
  - Malaise [Unknown]
  - Catheter site discharge [Unknown]
  - Infusion site discolouration [Unknown]
  - Catheter site pain [Unknown]
  - Catheter site erythema [Unknown]
  - Malaise [Not Recovered/Not Resolved]
  - Fatigue [Not Recovered/Not Resolved]
  - Chest pain [Not Recovered/Not Resolved]
